FAERS Safety Report 6780179-7 (Version None)
Quarter: 2010Q2

REPORT INFORMATION
  Report Type: 
  Country: None (occurrence: None)
  Receive Date: 20100618
  Receipt Date: 20100615
  Transmission Date: 20101027
  Serious: Yes (Death, Life-Threatening, Hospitalization)
  Sender: FDA-Public Use
  Company Number: IT-ELI_LILLY_AND_COMPANY-IT201006003751

PATIENT
  Sex: Male

DRUGS (8)
  1. HUMULIN CARTUCCE REGULAR [Suspect]
     Indication: DIABETES MELLITUS
     Dosage: 7 IU, DAILY (1/D)
     Route: 058
     Dates: start: 20090101
  2. FUROSEMIDE [Concomitant]
     Dosage: 125 MG, UNK
  3. RAMIPRIL [Concomitant]
     Dosage: 5 MG, UNK
  4. GABAPENTIN [Concomitant]
     Dosage: 1 D/F, UNK
  5. ALLOPURINOL [Concomitant]
  6. NITRODERM [Concomitant]
     Dosage: 10 MG, DAILY (1/D)
     Route: 062
  7. KCL-RETARD [Concomitant]
     Dosage: 1200 MG, DAILY (1/D)
  8. SERETIDE [Concomitant]

REACTIONS (7)
  - CARDIAC FAILURE [None]
  - DEATH [None]
  - DIVERTICULAR PERFORATION [None]
  - HYPOGLYCAEMIC COMA [None]
  - METABOLIC DISORDER [None]
  - MULTI-ORGAN FAILURE [None]
  - RESPIRATORY FAILURE [None]
